FAERS Safety Report 21983080 (Version 1)
Quarter: 2023Q1

REPORT INFORMATION
  Report Type: Report from Study
  Country: CA (occurrence: CA)
  Receive Date: 20230213
  Receipt Date: 20230213
  Transmission Date: 20230417
  Serious: Yes (Other)
  Sender: FDA-Public Use
  Company Number: CA-JNJFOC-20230160064

PATIENT
  Age: 66 Year
  Sex: Male
  Weight: 95 kg

DRUGS (1)
  1. REMICADE [Suspect]
     Active Substance: INFLIXIMAB
     Indication: Colitis ulcerative
     Dosage: CANCELLED 02-FEB-2023 APPOINTMENT AND DID NOT WISH TO REBOOK BECAUSE HE WAS SCHEDULED TO HAVE A TOTA
     Route: 042

REACTIONS (5)
  - Influenza [Unknown]
  - Oxygen saturation decreased [Unknown]
  - Gait disturbance [Unknown]
  - Drooling [Unknown]
  - Malaise [Unknown]

NARRATIVE: CASE EVENT DATE: 20230130
